FAERS Safety Report 5451743-2 (Version None)
Quarter: 2007Q3

REPORT INFORMATION
  Report Type: 
  Country: None (occurrence: None)
  Receive Date: 20070913
  Receipt Date: 20070904
  Transmission Date: 20080115
  Serious: Yes (Other)
  Sender: FDA-Public Use
  Company Number: US-PFIZER INC-2007074151

PATIENT
  Weight: 99.545 kg

DRUGS (3)
  1. VFEND [Suspect]
  2. CYCLOSPORINE [Concomitant]
  3. DRUG, UNSPECIFIED [Concomitant]

REACTIONS (2)
  - AMNESIA [None]
  - CONVULSION [None]
